FAERS Safety Report 4466764-6 (Version None)
Quarter: 2004Q4

REPORT INFORMATION
  Report Type: 
  Country: None (occurrence: None)
  Receive Date: 20041001
  Receipt Date: 20040918
  Transmission Date: 20050328
  Serious: Yes (Other)
  Sender: FDA-Public Use
  Company Number: 2004068118

PATIENT
  Age: 47 Year
  Sex: Male
  Weight: 88.4514 kg

DRUGS (7)
  1. VIAGRA [Suspect]
     Indication: ERECTILE DYSFUNCTION
     Dosage: (50 MG); ORAL
     Route: 048
     Dates: start: 20040801
  2. MORPHINE [Concomitant]
  3. MORPHINE SULFATE [Concomitant]
  4. OXYCODONE HCL [Concomitant]
  5. ESCITALOPRAM OXALATE [Concomitant]
  6. CLONZEPAM [Concomitant]
  7. TRIAZOLAM [Concomitant]

REACTIONS (5)
  - DRUG INEFFECTIVE [None]
  - INSOMNIA [None]
  - MARKEDLY REDUCED DIETARY INTAKE [None]
  - OEDEMA PERIPHERAL [None]
  - WEIGHT DECREASED [None]
